FAERS Safety Report 5298384-8 (Version None)
Quarter: 2007Q2

REPORT INFORMATION
  Report Type: 
  Country: None (occurrence: None)
  Receive Date: 20070416
  Receipt Date: 20070404
  Transmission Date: 20071010
  Serious: Yes (Other)
  Sender: FDA-Public Use
  Company Number: DE-PFIZER INC-2007027455

PATIENT
  Age: 68 Year
  Sex: Male

DRUGS (2)
  1. XALATAN [Suspect]
     Route: 061
  2. TRUSOPT [Concomitant]
     Route: 061

REACTIONS (2)
  - DRUG INEFFECTIVE [None]
  - INTRAOCULAR PRESSURE INCREASED [None]
